FAERS Safety Report 19236439 (Version 1)
Quarter: 2021Q2

REPORT INFORMATION
  Report Type: Spontaneous
  Country: US (occurrence: US)
  Receive Date: 20210510
  Receipt Date: 20210510
  Transmission Date: 20210717
  Serious: Yes (Hospitalization, Other)
  Sender: FDA-Public Use
  Company Number: US-PFIZER INC-2021491898

PATIENT
  Age: 25 Year
  Sex: Female

DRUGS (3)
  1. DEPO?PROVERA [Suspect]
     Active Substance: MEDROXYPROGESTERONE ACETATE
     Indication: DYSMENORRHOEA
     Dosage: UNK, SINGLE
     Route: 030
     Dates: start: 202104
  2. METFORMIN [Concomitant]
     Active Substance: METFORMIN HYDROCHLORIDE
     Dosage: UNK
  3. PROLACTIN [Concomitant]
     Active Substance: PROLACTIN
     Dosage: UNK

REACTIONS (5)
  - Dizziness [Unknown]
  - Palpitations [Unknown]
  - Drug hypersensitivity [Not Recovered/Not Resolved]
  - Eosinophil count increased [Unknown]
  - Off label use [Unknown]

NARRATIVE: CASE EVENT DATE: 202104
